FAERS Safety Report 8852586 (Version 1)
Quarter: 2012Q4

REPORT INFORMATION
  Report Type: Report from Study
  Country: US (occurrence: US)
  Receive Date: 20121022
  Receipt Date: 20121022
  Transmission Date: 20130627
  Serious: Yes (Other)
  Sender: FDA-Public Use
  Company Number: US-ROCHE-1146416

PATIENT
  Age: 60 Year
  Sex: Male

DRUGS (22)
  1. PEG-INTERFERON ALFA 2A [Suspect]
     Indication: HEPATITIS C
     Route: 065
     Dates: start: 20110920, end: 20111221
  2. RIBAVIRIN [Suspect]
     Indication: HEPATITIS C
     Route: 065
     Dates: start: 20110920, end: 20111221
  3. BLINDED BMS-986094 [Suspect]
     Indication: HEPATITIS C
     Route: 048
  4. CELEBREX [Concomitant]
     Route: 065
     Dates: start: 20000101
  5. LISINOPRIL [Concomitant]
     Dosage: 2 x 25 mg daily
     Route: 065
     Dates: start: 20000101
  6. CLONIDINE [Concomitant]
     Dosage: 2 x 0.1 mg daily
     Route: 065
     Dates: start: 20100101
  7. PIROXICAM [Concomitant]
     Route: 065
     Dates: start: 20100101, end: 20120201
  8. PLAQUENIL [Concomitant]
     Route: 065
     Dates: start: 20110912, end: 20120201
  9. ASA (ACETYLSALICYLIC ACID) [Concomitant]
     Dosage: 2 x 325 mg qAM
     Route: 065
     Dates: start: 20100101
  10. CARISOPRODOL [Concomitant]
     Route: 065
     Dates: start: 20100101
  11. HYDROCODONE/ACETAMINOPHEN [Concomitant]
     Dosage: 5/500 5/500
     Route: 065
     Dates: start: 20100101
  12. AMBIEN [Concomitant]
     Dosage: 10 mg qhs prn
     Route: 065
     Dates: start: 20100110, end: 20111005
  13. AMBIEN [Concomitant]
     Route: 065
     Dates: start: 20111013
  14. ZOFRAN [Concomitant]
     Route: 065
     Dates: start: 20111020, end: 20120216
  15. MULTAQ [Concomitant]
     Route: 065
     Dates: start: 20000110
  16. MAGIC MOUTHWASH (TETRACYCLINE, NYSTATIN, BENADRYL, DECADRON) [Concomitant]
     Route: 065
     Dates: start: 20111122, end: 20120216
  17. OXYCODONE HCL/ACETAMINOPHEN [Concomitant]
     Dosage: 5/325 q6h prn
     Route: 065
     Dates: start: 20101201
  18. ALEVE [Concomitant]
     Dosage: 440 mg qAM
     Route: 065
     Dates: start: 20110929, end: 20120216
  19. CLOBETASOL [Concomitant]
     Route: 065
     Dates: start: 20111110, end: 20111114
  20. DULCOLAX (BISACODYL) [Concomitant]
     Route: 065
     Dates: start: 20111118, end: 20111118
  21. PAROXETINE HCL [Concomitant]
     Dosage: 29 mg qAM
     Route: 065
     Dates: start: 20111006, end: 20111020
  22. ESZOPICLONE [Concomitant]
     Dosage: 3 mg qhs prn
     Route: 065
     Dates: start: 20111006, end: 20111012

REACTIONS (1)
  - Blood creatinine increased [Recovered/Resolved]
